FAERS Safety Report 7199988-8 (Version None)
Quarter: 2010Q4

REPORT INFORMATION
  Report Type: 
  Country: None (occurrence: None)
  Receive Date: 20101228
  Receipt Date: 20100902
  Transmission Date: 20110411
  Serious: No
  Sender: FDA-Public Use
  Company Number: US-MYLANLABS-2010S1016444

PATIENT
  Age: 63 Year
  Sex: Female

DRUGS (9)
  1. TOPIRAMATE [Suspect]
     Indication: NERVE INJURY
     Route: 048
     Dates: start: 20100714
  2. LIPITOR [Concomitant]
  3. ADVAIR [Concomitant]
  4. METOPROLOL TARTRATE [Concomitant]
  5. SPIRIVA [Concomitant]
  6. OMEPRAZOLE [Concomitant]
  7. ENABLEX [Concomitant]
  8. FLUTICASONE PROPIONATE [Concomitant]
  9. ALPRAZOLAM [Concomitant]

REACTIONS (2)
  - DYSGEUSIA [None]
  - GASTROOESOPHAGEAL REFLUX DISEASE [None]
